FAERS Safety Report 10373936 (Version 1)
Quarter: 2014Q1

REPORT INFORMATION
  Report Type: Spontaneous
  Country: US (occurrence: None)
  Receive Date: 20140306
  Receipt Date: 20140306
  Transmission Date: 20141002
  Serious: Yes (Hospitalization, Other)
  Sender: FDA-Public Use
  Company Number: 163-21880-13013333

PATIENT
  Age: 82 Year
  Sex: Male
  Weight: 52.8 kg

DRUGS (7)
  1. REVLIMID [Suspect]
     Indication: AMYLOIDOSIS
     Dosage: 5 MG, 21 IN 21 D, PO
     Route: 048
     Dates: start: 20121026
  2. REVLIMID [Suspect]
     Indication: PLASMA CELL MYELOMA
     Dosage: 5 MG, 21 IN 21 D, PO
     Route: 048
     Dates: start: 20121026
  3. CENTRUM SILVER (CENTRUM SILVER) (UNKNOWN) [Concomitant]
  4. FUROSEMIDE (FUROSEMIDE) (TABLETS) [Concomitant]
  5. SPIRONOLACTONE (SPIRONOLACTONE) (UNKNOWN) [Concomitant]
  6. VITAMIN B-12 (CYANOCOBALAMIN) (UNKNOWN) [Concomitant]
  7. L-GLUTAMINE (LEVOGLUTAMIDE) (TABLETS) [Concomitant]

REACTIONS (8)
  - Influenza like illness [None]
  - Dry skin [None]
  - Osteoporosis [None]
  - Psoriasis [None]
  - Skin ulcer [None]
  - Rash [None]
  - Weight decreased [None]
  - Decreased appetite [None]
